FAERS Safety Report 16165512 (Version 1)
Quarter: 2019Q2

REPORT INFORMATION
  Report Type: Spontaneous
  Country: US (occurrence: US)
  Receive Date: 20190405
  Receipt Date: 20190405
  Transmission Date: 20190711
  Serious: No
  Sender: FDA-Public Use
  Company Number: US-IBSA PHARMA-TIR-2018-1126

PATIENT
  Age: 65 Year
  Sex: Female

DRUGS (1)
  1. TIROSINT [Suspect]
     Active Substance: LEVOTHYROXINE SODIUM
     Indication: THYROIDECTOMY
     Dosage: 13MCG DAILY
     Route: 048
     Dates: start: 201806

REACTIONS (1)
  - Drug level above therapeutic [Unknown]

NARRATIVE: CASE EVENT DATE: 2018
